FAERS Safety Report 8033643-7 (Version None)
Quarter: 2012Q1

REPORT INFORMATION
  Report Type: 
  Country: None (occurrence: None)
  Receive Date: 20120110
  Receipt Date: 20120105
  Transmission Date: 20120608
  Serious: Yes (Death)
  Sender: FDA-Public Use
  Company Number: US-SANOFI-AVENTIS-2012SA000922

PATIENT
  Sex: Male

DRUGS (1)
  1. AMBIEN [Suspect]

REACTIONS (1)
  - COMPLETED SUICIDE [None]
